FAERS Safety Report 9340985 (Version 2)
Quarter: 2013Q3

REPORT INFORMATION
  Report Type: Report from Study
  Country: US (occurrence: US)
  Receive Date: 20130610
  Receipt Date: 20130703
  Transmission Date: 20140515
  Serious: Yes (Hospitalization, Other)
  Sender: FDA-Public Use
  Company Number: US-US-EMD SERONO, INC.-7216135

PATIENT
  Sex: Female
  Weight: 75 kg

DRUGS (6)
  1. REBIF [Suspect]
     Indication: MULTIPLE SCLEROSIS
     Route: 058
     Dates: start: 20090512, end: 20130506
  2. METOPROLOL                         /00376902/ [Concomitant]
     Indication: HYPERTENSION
  3. AMLODIPIN                          /00972401/ [Concomitant]
     Indication: HYPERTENSION
  4. FOLIC ACID [Concomitant]
     Indication: PRODUCT USED FOR UNKNOWN INDICATION
  5. WELLBUTRIN                         /00700501/ [Concomitant]
  6. VITAMIN D                          /00107901/ [Concomitant]

REACTIONS (4)
  - Uterine leiomyoma [Recovered/Resolved]
  - Urogenital haemorrhage [Unknown]
  - Anaemia [Recovering/Resolving]
  - White blood cell count decreased [Unknown]
